FAERS Safety Report 8077809-9 (Version None)
Quarter: 2012Q1

REPORT INFORMATION
  Report Type: 
  Country: None (occurrence: None)
  Receive Date: 20120127
  Receipt Date: 20120123
  Transmission Date: 20120608
  Serious: Yes (Life-Threatening, Hospitalization, Other)
  Sender: FDA-Public Use
  Company Number: US-ASTRAZENECA-2011SE74081

PATIENT
  Age: 33 Year
  Sex: Male

DRUGS (8)
  1. SEROQUEL [Suspect]
     Route: 048
  2. SEROQUEL [Suspect]
     Route: 048
  3. SEROQUEL [Suspect]
     Route: 048
  4. SEROQUEL [Suspect]
     Route: 048
  5. SEROQUEL [Suspect]
     Indication: BIPOLAR I DISORDER
     Route: 048
     Dates: start: 20090901
  6. SEROQUEL [Suspect]
     Indication: BIPOLAR DISORDER
     Route: 048
     Dates: start: 20090901
  7. SEROQUEL [Suspect]
     Route: 048
  8. SEROQUEL [Suspect]
     Route: 048

REACTIONS (10)
  - DEPRESSION [None]
  - MOOD SWINGS [None]
  - GUN SHOT WOUND [None]
  - FEELING ABNORMAL [None]
  - MANIA [None]
  - DRUG DOSE OMISSION [None]
  - SUICIDE ATTEMPT [None]
  - ANGER [None]
  - NEOPLASM MALIGNANT [None]
  - SUICIDAL IDEATION [None]
